FAERS Safety Report 8554232 (Version 2)
Quarter: 2014Q3

REPORT INFORMATION
  Report Type: Report from Study
  Country: IE (occurrence: IE)
  Receive Date: 20120509
  Receipt Date: 20140822
  Transmission Date: 20150326
  Serious: Yes (Death, Hospitalization, Other)
  Sender: FDA-Public Use
  Company Number: IE-ELI_LILLY_AND_COMPANY-IE201204009177

PATIENT
  Age: 69 Year
  Sex: Female

DRUGS (7)
  1. TERIPARATIDE [Suspect]
     Active Substance: TERIPARATIDE
     Indication: OSTEOPOROSIS
     Dosage: 20 UG, QD
     Route: 058
     Dates: start: 20120326
  2. DETRUSITOL [Concomitant]
     Active Substance: TOLTERODINE TARTRATE
  3. MOTILIUM [Concomitant]
     Active Substance: DOMPERIDONE
  4. LYRICA [Concomitant]
     Active Substance: PREGABALIN
  5. CAPRIN [Concomitant]
  6. TYLEX                              /00547501/ [Concomitant]
  7. MORPHINE [Concomitant]
     Active Substance: MORPHINE

REACTIONS (2)
  - Lower respiratory tract infection [Recovering/Resolving]
  - Death [Fatal]

NARRATIVE: CASE EVENT DATE: 20130516
